FAERS Safety Report 10301242 (Version 5)
Quarter: 2015Q3

REPORT INFORMATION
  Report Type: Spontaneous
  Country: US (occurrence: US)
  Receive Date: 20140714
  Receipt Date: 20150813
  Transmission Date: 20151125
  Serious: Yes (Hospitalization, Other)
  Sender: FDA-Public Use
  Company Number: US-JNJFOC-20140202794

PATIENT
  Age: 63 Year
  Sex: Female
  Weight: 108.86 kg

DRUGS (19)
  1. METFORMIN [Concomitant]
     Active Substance: METFORMIN HYDROCHLORIDE
     Indication: DIABETES MELLITUS
     Dosage: 5 MG/ 40 MG
     Route: 065
  2. VITAMINS (NOS) [Concomitant]
     Active Substance: VITAMINS
     Dosage: 5 MG/ 40 MG
     Route: 065
  3. COLACE [Concomitant]
     Active Substance: DOCUSATE SODIUM
     Dosage: 5 MG/ 40 MG
     Route: 065
  4. TRAMADOL HYDROCHLORIDE. [Concomitant]
     Active Substance: TRAMADOL HYDROCHLORIDE
     Indication: PAIN
     Dosage: 5 MG/ 40 MG
     Route: 065
  5. TYLENOL [Concomitant]
     Active Substance: ACETAMINOPHEN
     Indication: PAIN
     Dosage: 5 MG/ 40 MG
     Route: 065
  6. GLIPIZIDE ER [Concomitant]
     Active Substance: GLIPIZIDE
     Indication: DIABETES MELLITUS
     Dosage: 5 MG/ 40 MG
     Route: 065
  7. JANUVIA [Concomitant]
     Active Substance: SITAGLIPTIN PHOSPHATE
     Indication: DIABETES MELLITUS
     Dosage: 5 MG/ 40 MG
     Route: 065
  8. RISPERDAL [Suspect]
     Active Substance: RISPERIDONE
     Indication: SCHIZOAFFECTIVE DISORDER
     Dosage: 2 MG DOSE; 1 DOSE AT LATE PM AND 2 DOSES AT HOUR OF SLEEP (2 MG-3 TIMES A DAY)
     Route: 048
     Dates: start: 20130611
  9. LEVEMIR [Concomitant]
     Active Substance: INSULIN DETEMIR
     Indication: DIABETES MELLITUS
     Dosage: 5 MG/ 40 MG
     Route: 065
  10. AMLODIPINE / BENAZEPRIL [Concomitant]
     Indication: BLOOD PRESSURE MEASUREMENT
     Dosage: 5 MG/ 40 MG
     Route: 065
     Dates: start: 201206
  11. MINERAL SUPPLEMENTS [Concomitant]
     Active Substance: UNSPECIFIED INGREDIENT
     Dosage: 5 MG/ 40 MG
     Route: 065
  12. RISPERDAL [Suspect]
     Active Substance: RISPERIDONE
     Indication: PSYCHOTIC DISORDER
     Dosage: 2 MG DOSE; 1 DOSE AT LATE PM AND 2 DOSES AT HOUR OF SLEEP (2 MG-3 TIMES A DAY)
     Route: 048
     Dates: start: 20130611
  13. DEPAKOTE [Suspect]
     Active Substance: DIVALPROEX SODIUM
     Indication: MENTAL DISORDER
     Route: 065
     Dates: start: 201306
  14. MILK OF MAGNESIA [Concomitant]
     Active Substance: MAGNESIUM HYDROXIDE
     Dosage: 5 MG/ 40 MG
     Route: 065
  15. LOTREL [Concomitant]
     Active Substance: AMLODIPINE BESYLATE\BENAZEPRIL HYDROCHLORIDE
     Dosage: 5 MG/ 40 MG
     Route: 065
  16. SIMVASTATIN. [Concomitant]
     Active Substance: SIMVASTATIN
     Indication: BLOOD CHOLESTEROL INCREASED
     Dosage: 5 MG/ 40 MG
     Route: 065
  17. CENTRUM (MINERALS NOS, VITAMINS NOS) [Concomitant]
     Indication: VITAMIN SUPPLEMENTATION
     Dosage: 5 MG/ 40 MG
     Route: 065
  18. TUMS [Concomitant]
     Active Substance: CALCIUM CARBONATE
     Dosage: 5 MG/ 40 MG
     Route: 065
  19. CHLOROPHYLL [Concomitant]
     Dosage: 5 MG/ 40 MG
     Route: 065

REACTIONS (20)
  - Abnormal weight gain [Not Recovered/Not Resolved]
  - Lipids abnormal [Recovering/Resolving]
  - Pharyngeal disorder [Not Recovered/Not Resolved]
  - Therapeutic response decreased [Not Recovered/Not Resolved]
  - Anxiety [Recovering/Resolving]
  - Depression [Recovering/Resolving]
  - Food allergy [Not Recovered/Not Resolved]
  - Dizziness [Not Recovered/Not Resolved]
  - Hypertension [Recovering/Resolving]
  - Deafness [Not Recovered/Not Resolved]
  - Vision blurred [Not Recovered/Not Resolved]
  - Constipation [Not Recovered/Not Resolved]
  - Respiratory tract congestion [Not Recovered/Not Resolved]
  - Wheezing [Not Recovered/Not Resolved]
  - Nausea [Not Recovered/Not Resolved]
  - Diarrhoea [Not Recovered/Not Resolved]
  - Insomnia [Recovering/Resolving]
  - Diabetes mellitus [Not Recovered/Not Resolved]
  - Activities of daily living impaired [Not Recovered/Not Resolved]
  - Asthenia [Not Recovered/Not Resolved]

NARRATIVE: CASE EVENT DATE: 2013
